FAERS Safety Report 16758786 (Version 3)
Quarter: 2019Q4

REPORT INFORMATION
  Report Type: Spontaneous
  Country: US (occurrence: US)
  Receive Date: 20190830
  Receipt Date: 20191004
  Transmission Date: 20200122
  Serious: No
  Sender: FDA-Public Use
  Company Number: US-GLAXOSMITHKLINE-US2019154076

PATIENT
  Age: 49 Year
  Sex: Female

DRUGS (1)
  1. BENLYSTA [Suspect]
     Active Substance: BELIMUMAB
     Indication: PRODUCT USED FOR UNKNOWN INDICATION
     Dosage: UNK
     Route: 065
     Dates: start: 20190621

REACTIONS (5)
  - Underdose [Unknown]
  - Exposure via skin contact [Unknown]
  - Skin disorder [Unknown]
  - Contusion [Unknown]
  - Product complaint [Unknown]

NARRATIVE: CASE EVENT DATE: 201908
